FAERS Safety Report 5189348-3 (Version None)
Quarter: 2006Q4

REPORT INFORMATION
  Report Type: 
  Country: None (occurrence: None)
  Receive Date: 20061215
  Receipt Date: 20061204
  Transmission Date: 20070319
  Serious: Yes (Death, Other)
  Sender: FDA-Public Use
  Company Number: 2006093399

PATIENT
  Age: 63 Year
  Sex: Male
  Weight: 83.9154 kg

DRUGS (10)
  1. NEURONTIN [Suspect]
     Indication: ANXIETY
     Dosage: 3000 MG (600 MG)
     Dates: start: 20020703, end: 20040704
  2. NEURONTIN [Suspect]
     Indication: BIPOLAR DISORDER
     Dosage: 3000 MG (600 MG)
     Dates: start: 20020703, end: 20040704
  3. NEURONTIN [Suspect]
     Indication: DEPRESSION
     Dosage: 3000 MG (600 MG)
     Dates: start: 20020703, end: 20040704
  4. BUSPIRONE HCL [Concomitant]
  5. CLONAZEPAM [Concomitant]
  6. EFFEXOR [Concomitant]
  7. MIRTAZAPINE [Concomitant]
  8. RISPERDAL [Concomitant]
  9. REMERON [Concomitant]
  10. CELEXA [Concomitant]

REACTIONS (5)
  - AGORAPHOBIA [None]
  - ANXIETY [None]
  - COMPLETED SUICIDE [None]
  - DEPRESSION [None]
  - SLEEP APNOEA SYNDROME [None]
